FAERS Safety Report 5774326-3 (Version None)
Quarter: 2008Q2

REPORT INFORMATION
  Report Type: 
  Country: None (occurrence: None)
  Receive Date: 20080616
  Receipt Date: 20080602
  Transmission Date: 20081010
  Serious: Yes (Other)
  Sender: FDA-Public Use
  Company Number: PHHY2008JP05252

PATIENT
  Sex: Female

DRUGS (10)
  1. NEORAL [Suspect]
     Indication: NEPHROTIC SYNDROME
     Dosage: 25 MG, BID
     Route: 048
     Dates: start: 20080318
  2. PREDONINE-1 [Concomitant]
     Indication: JUVENILE ARTHRITIS
     Dosage: 40 MG/DAY
     Dates: start: 20080228, end: 20080303
  3. PREDONINE [Concomitant]
     Indication: JUVENILE ARTHRITIS
     Dosage: 40 MG/DAY
     Route: 048
     Dates: start: 20080304
  4. PREDONINE [Concomitant]
     Dosage: 35 MG/DAY
     Route: 048
  5. PREDONINE [Concomitant]
     Dosage: 30 MG/DAY
     Route: 048
  6. PREDONINE [Concomitant]
     Dosage: 25 MG/DAY
     Route: 048
  7. PREDONINE [Concomitant]
     Dosage: 20 MG/DAY
     Route: 048
  8. SULFAMETHOXAZOLE AND TRIMETHOPRIM [Concomitant]
     Dosage: UNK
     Route: 048
     Dates: start: 20080311
  9. LANSOPRAZOLE [Concomitant]
     Dosage: 30 MG/DAY
     Route: 048
  10. DIFLUCAN [Concomitant]
     Dosage: 50 MG/DAY
     Route: 048
     Dates: start: 20080318, end: 20080421

REACTIONS (10)
  - ABNORMAL BEHAVIOUR [None]
  - AFFECT LABILITY [None]
  - ALTERED STATE OF CONSCIOUSNESS [None]
  - CAROTID ARTERY STENOSIS [None]
  - COMMUNICATION DISORDER [None]
  - CRYING [None]
  - DYSARTHRIA [None]
  - INCOHERENT [None]
  - INTRACRANIAL ANEURYSM [None]
  - REPETITIVE SPEECH [None]
